FAERS Safety Report 16308139 (Version 1)
Quarter: 2019Q2

REPORT INFORMATION
  Report Type: Spontaneous
  Country: JP (occurrence: JP)
  Receive Date: 20190514
  Receipt Date: 20190514
  Transmission Date: 20190711
  Serious: Yes (Disabling, Other)
  Sender: FDA-Public Use
  Company Number: JP-ROCHE-2298231

PATIENT
  Age: 71 Year
  Sex: Male

DRUGS (10)
  1. DENOSINE [GANCICLOVIR] [Suspect]
     Active Substance: GANCICLOVIR
     Route: 041
  2. DENOSINE [GANCICLOVIR] [Suspect]
     Active Substance: GANCICLOVIR
     Route: 041
  3. CLINDAMYCIN PHOSPHATE. [Concomitant]
     Active Substance: CLINDAMYCIN PHOSPHATE
     Route: 065
     Dates: start: 20190115
  4. PENICILLIN G POTASSIUM. [Concomitant]
     Active Substance: PENICILLIN G POTASSIUM
     Indication: MEDIASTINITIS
     Dosage: 2 MEGA-INTERNATIONAL
     Route: 065
  5. FESIN [SACCHARATED IRON OXIDE] [Concomitant]
     Route: 065
     Dates: start: 20190217, end: 20190225
  6. ANAEMETRO [Concomitant]
     Active Substance: METRONIDAZOLE
     Indication: ABSCESS NECK
     Route: 042
     Dates: start: 20190208, end: 20190219
  7. MEROPENEM TRIHYDRATE [Concomitant]
     Active Substance: MEROPENEM
     Route: 065
     Dates: start: 20190115
  8. DENOSINE [GANCICLOVIR] [Suspect]
     Active Substance: GANCICLOVIR
     Indication: CYTOMEGALOVIRUS VIRAEMIA
     Route: 041
     Dates: start: 20190215, end: 20190225
  9. PENICILLIN G POTASSIUM. [Concomitant]
     Active Substance: PENICILLIN G POTASSIUM
     Indication: ABSCESS NECK
     Route: 042
     Dates: start: 20190129
  10. ANAEMETRO [Concomitant]
     Active Substance: METRONIDAZOLE
     Indication: MEDIASTINITIS

REACTIONS (3)
  - Hepatic function abnormal [Recovered/Resolved]
  - White blood cell count decreased [Recovered/Resolved]
  - Neutrophil count decreased [Recovered/Resolved]

NARRATIVE: CASE EVENT DATE: 20190220
